FAERS Safety Report 25088771 (Version 1)
Quarter: 2025Q1

REPORT INFORMATION
  Report Type: Spontaneous
  Country: US (occurrence: US)
  Receive Date: 20250318
  Receipt Date: 20250318
  Transmission Date: 20250409
  Serious: No
  Sender: ALKERMES
  Company Number: US-ALKERMES INC.-ALK-2025-000597

PATIENT
  Sex: Female

DRUGS (2)
  1. VIVITROL [Suspect]
     Active Substance: NALTREXONE
     Indication: Alcoholism
     Route: 030
  2. VIVITROL [Suspect]
     Active Substance: NALTREXONE
     Indication: Alcohol withdrawal syndrome

REACTIONS (3)
  - Pain [Unknown]
  - Injection site mass [Unknown]
  - Injection site pain [Unknown]
